FAERS Safety Report 21509828 (Version 1)
Quarter: 2022Q4

REPORT INFORMATION
  Report Type: Report from Study
  Country: DE (occurrence: DE)
  Receive Date: 20221026
  Receipt Date: 20221026
  Transmission Date: 20230112
  Serious: Yes (Other)
  Sender: FDA-Public Use
  Company Number: DE-JAZZ-2022-DE-004943

PATIENT
  Age: 60 Year

DRUGS (1)
  1. DEFITELIO [Suspect]
     Active Substance: DEFIBROTIDE SODIUM
     Indication: Prophylaxis
     Dosage: UNK
     Dates: start: 20211216, end: 20220102

REACTIONS (2)
  - Venoocclusive disease [Recovered/Resolved]
  - Off label use [Unknown]
